FAERS Safety Report 22380303 (Version 5)
Quarter: 2024Q1

REPORT INFORMATION
  Report Type: Spontaneous
  Country: US (occurrence: US)
  Receive Date: 20230529
  Receipt Date: 20240104
  Transmission Date: 20240410
  Serious: Yes (Other)
  Sender: FDA-Public Use
  Company Number: US-PFIZER INC-202300201409

PATIENT
  Age: 79 Year
  Sex: Female
  Weight: 56.7 kg

DRUGS (1)
  1. XELJANZ [Suspect]
     Active Substance: TOFACITINIB CITRATE
     Indication: Musculoskeletal disorder
     Dosage: 5 MG, 2X/DAY, (TAKES ONE TABLET TWICE A DAY ONCE IN MORNING AND ONCE IN EVENING)
     Route: 048

REACTIONS (5)
  - Limb injury [Unknown]
  - Spinal operation [Unknown]
  - Sensitivity to weather change [Unknown]
  - Back pain [Unknown]
  - Rotator cuff syndrome [Unknown]
